FAERS Safety Report 20524983 (Version 1)
Quarter: 2022Q1

REPORT INFORMATION
  Report Type: Spontaneous
  Country: US (occurrence: None)
  Receive Date: 20220225
  Receipt Date: 20220225
  Transmission Date: 20220423
  Serious: Yes (Hospitalization, Other)
  Sender: FDA-Public Use
  Company Number: None

PATIENT
  Age: 32 Year
  Sex: Female

DRUGS (1)
  1. REGEN-COV [Suspect]
     Active Substance: CASIRIVIMAB\IMDEVIMAB
     Indication: COVID-19
     Dosage: OTHER FREQUENCY : ONE TIME TREATMENT;?
     Route: 042
     Dates: start: 20211206, end: 20211206

REACTIONS (7)
  - Stillbirth [None]
  - Maternal exposure timing unspecified [None]
  - Maternal drugs affecting foetus [None]
  - Chills [None]
  - Tremor [None]
  - Feeling abnormal [None]
  - Platelet count decreased [None]

NARRATIVE: CASE EVENT DATE: 20211208
